FAERS Safety Report 10166283 (Version 2)
Quarter: 2014Q2

REPORT INFORMATION
  Report Type: Report from Study
  Country: CA (occurrence: CA)
  Receive Date: 20140512
  Receipt Date: 20140603
  Transmission Date: 20141212
  Serious: Yes (Hospitalization)
  Sender: FDA-Public Use
  Company Number: CA-BRISTOL-MYERS SQUIBB COMPANY-20705299

PATIENT
  Age: 44 Year
  Sex: Female

DRUGS (8)
  1. ORENCIA [Suspect]
     Indication: RHEUMATOID ARTHRITIS
     Dosage: 1 DF= 750 NO UNITS
     Route: 042
     Dates: start: 20120417
  2. ORENCIA [Suspect]
     Indication: JUVENILE IDIOPATHIC ARTHRITIS
     Dosage: 1 DF= 750 NO UNITS
     Route: 042
     Dates: start: 20120417
  3. LYRICA [Concomitant]
  4. VALACYCLOVIR [Concomitant]
  5. CELEBREX [Concomitant]
  6. LANSOPRAZOLE [Concomitant]
  7. CITALOPRAM [Concomitant]
  8. FOLIC ACID [Concomitant]

REACTIONS (1)
  - Anxiety [Recovering/Resolving]
